FAERS Safety Report 17485861 (Version 1)
Quarter: 2020Q1

REPORT INFORMATION
  Report Type: Spontaneous
  Country: GB (occurrence: GB)
  Receive Date: 20200302
  Receipt Date: 20200302
  Transmission Date: 20200409
  Serious: Yes (Other)
  Sender: FDA-Public Use
  Company Number: GB-ACCORD-174472

PATIENT
  Age: 31 Year
  Sex: Male
  Weight: 71.66 kg

DRUGS (2)
  1. AMITRIPTYLINE [Suspect]
     Active Substance: AMITRIPTYLINE
     Indication: MIGRAINE PROPHYLAXIS
     Route: 048
     Dates: start: 20200210
  2. SUMATRIPTAN. [Concomitant]
     Active Substance: SUMATRIPTAN

REACTIONS (3)
  - Dry mouth [Not Recovered/Not Resolved]
  - Increased appetite [Recovering/Resolving]
  - Somnolence [Recovering/Resolving]

NARRATIVE: CASE EVENT DATE: 20200210
